FAERS Safety Report 6633368-6 (Version None)
Quarter: 2010Q1

REPORT INFORMATION
  Report Type: 
  Country: None (occurrence: None)
  Receive Date: 20100312
  Receipt Date: 20090420
  Transmission Date: 20100710
  Serious: No
  Sender: FDA-Public Use
  Company Number: US-ABBOTT-08P-163-0458780-00

PATIENT
  Sex: Female
  Weight: 72.64 kg

DRUGS (2)
  1. E.E.S. 400 [Suspect]
     Indication: DRUG USE FOR UNKNOWN INDICATION
  2. VOLTAREN [Interacting]
     Indication: DRUG USE FOR UNKNOWN INDICATION

REACTIONS (2)
  - DRUG INTERACTION [None]
  - URTICARIA [None]
